FAERS Safety Report 9469717 (Version 3)
Quarter: 2013Q3

REPORT INFORMATION
  Report Type: Spontaneous
  Country: CR (occurrence: CR)
  Receive Date: 20130822
  Receipt Date: 20130902
  Transmission Date: 20140515
  Serious: Yes (Other)
  Sender: FDA-Public Use
  Company Number: PHHY2013CR089441

PATIENT
  Sex: Female

DRUGS (2)
  1. GLIVEC [Suspect]
     Indication: RENAL CELL CARCINOMA
     Dosage: 400 MG, UNK
     Dates: start: 2006
  2. GLIVEC [Suspect]
     Indication: OFF LABEL USE
     Dosage: 800 MG
     Dates: start: 20120209

REACTIONS (4)
  - Chromosome analysis abnormal [Unknown]
  - Renal cell carcinoma [Unknown]
  - Malignant neoplasm progression [Unknown]
  - Drug ineffective [Unknown]
